FAERS Safety Report 6141533-X (Version None)
Quarter: 2009Q2

REPORT INFORMATION
  Report Type: 
  Country: None (occurrence: None)
  Receive Date: 20090402
  Receipt Date: 20090330
  Transmission Date: 20091009
  Serious: Yes (Other)
  Sender: FDA-Public Use
  Company Number: US-ASTRAZENECA-2009UW08013

PATIENT
  Age: 34 Year
  Sex: Male

DRUGS (1)
  1. SEROQUEL [Suspect]
     Indication: INSOMNIA
     Route: 048
     Dates: end: 20090301

REACTIONS (4)
  - ANGER [None]
  - CONFUSIONAL STATE [None]
  - HOSTILITY [None]
  - PSYCHOGENIC PAIN DISORDER [None]
